FAERS Safety Report 16793459 (Version 2)
Quarter: 2019Q4

REPORT INFORMATION
  Report Type: Spontaneous
  Country: DE (occurrence: DE)
  Receive Date: 20190911
  Receipt Date: 20191007
  Transmission Date: 20200122
  Serious: Yes (Other)
  Sender: FDA-Public Use
  Company Number: DE-009507513-1909DEU001979

PATIENT
  Age: 63 Year
  Sex: Male
  Weight: 93 kg

DRUGS (5)
  1. BERLTHYROX [Concomitant]
     Active Substance: LEVOTHYROXINE SODIUM
     Indication: HYPOTHYROIDISM
     Dosage: ONE DOSE A DAY
     Dates: start: 2014
  2. TRULICITY [Concomitant]
     Active Substance: DULAGLUTIDE
     Indication: DIABETES MELLITUS
     Dosage: ONE DOSE A WEEK
     Dates: start: 201905
  3. STEGLUJAN [Suspect]
     Active Substance: ERTUGLIFLOZIN PIDOLATE\SITAGLIPTIN PHOSPHATE
     Indication: DIABETES MELLITUS
     Dosage: ONE TABLET ONCE DAILY, IN THE MORNING
     Route: 048
     Dates: start: 20190624, end: 20190729
  4. PANGROL [Concomitant]
     Active Substance: PANCRELIPASE
     Indication: DIABETES MELLITUS
     Dosage: ONE DOSE A DAY
     Dates: start: 201905
  5. OLMESARTAN MEDOXOMIL. [Concomitant]
     Active Substance: OLMESARTAN MEDOXOMIL
     Indication: HYPERTENSION
     Dosage: ONE DOSE A DAY
     Dates: start: 2016

REACTIONS (1)
  - Urinary retention [Unknown]

NARRATIVE: CASE EVENT DATE: 201907
